FAERS Safety Report 5513221-1 (Version None)
Quarter: 2007Q4

REPORT INFORMATION
  Report Type: 
  Country: None (occurrence: None)
  Receive Date: 20071112
  Receipt Date: 20071106
  Transmission Date: 20080405
  Serious: Yes (Hospitalization)
  Sender: FDA-Public Use
  Company Number: DK-KINGPHARMUSA00001-K200701406

PATIENT

DRUGS (1)
  1. EPIPEN [Suspect]
     Dosage: .3 MG, SINGLE
     Route: 030
     Dates: start: 20071013, end: 20071013

REACTIONS (5)
  - ACCIDENTAL EXPOSURE [None]
  - EXPIRED DRUG ADMINISTERED [None]
  - INJECTION SITE DISCOLOURATION [None]
  - INJECTION SITE PALLOR [None]
  - VASOCONSTRICTION [None]
